FAERS Safety Report 13500647 (Version 2)
Quarter: 2017Q2

REPORT INFORMATION
  Report Type: Spontaneous
  Country: DK (occurrence: DK)
  Receive Date: 20170501
  Receipt Date: 20170518
  Transmission Date: 20170830
  Serious: Yes (Other)
  Sender: FDA-Public Use
  Company Number: DK-ALLERGAN-1716425US

PATIENT
  Age: 30 Year
  Sex: Female

DRUGS (1)
  1. LEVONORGESTREL UNK [Suspect]
     Active Substance: LEVONORGESTREL
     Indication: PRODUCT USED FOR UNKNOWN INDICATION
     Dosage: 52 MG, SINGLE
     Route: 015
     Dates: start: 20140914, end: 20161217

REACTIONS (3)
  - Drug ineffective [Unknown]
  - Pregnancy with contraceptive device [Unknown]
  - Menstruation irregular [Unknown]

NARRATIVE: CASE EVENT DATE: 20161214
